FAERS Safety Report 5839622-X (Version None)
Quarter: 2008Q3

REPORT INFORMATION
  Report Type: 
  Country: None (occurrence: None)
  Receive Date: 20080811
  Receipt Date: 20080801
  Transmission Date: 20090109
  Serious: Yes (Other)
  Sender: FDA-Public Use
  Company Number: US-JNJFOC-20080800981

PATIENT
  Sex: Female
  Weight: 95.7 kg

DRUGS (14)
  1. LEVAQUIN [Suspect]
     Indication: LUNG INFECTION
     Route: 065
  2. LYRICA [Suspect]
     Indication: FIBROMYALGIA
     Route: 065
  3. MONTELUKAST SODIUM [Suspect]
     Indication: ASTHMA
     Route: 065
  4. ATENOLOL [Concomitant]
     Route: 065
  5. ACIPHEX [Concomitant]
  6. TOPAMAX [Concomitant]
  7. VYTORIN [Concomitant]
     Dosage: DOSE IS 10/20 MG DAILY.
     Route: 065
  8. CYMBALTA [Concomitant]
     Route: 065
  9. POTASSIUM CHLORIDE [Concomitant]
     Route: 065
  10. ADVAIR DISKUS 100/50 [Concomitant]
     Indication: ASTHMA
     Dosage: DOSE IS 250/50 TWICE DAILY.
     Route: 065
  11. PROVENTIL GENTLEHALER [Concomitant]
     Dosage: DRUG HAS TO BE TAKEN AS NECESSARY.
     Route: 065
  12. OMEGA FISH OIL [Concomitant]
     Route: 065
  13. VITAMIN E [Concomitant]
     Route: 065
  14. ECHINACEA [Concomitant]

REACTIONS (8)
  - ASTHENIA [None]
  - CHEST PAIN [None]
  - DIZZINESS [None]
  - DYSPNOEA [None]
  - FIBROMYALGIA [None]
  - NAUSEA [None]
  - OEDEMA PERIPHERAL [None]
  - OXYGEN SATURATION DECREASED [None]
